FAERS Safety Report 19941094 (Version 5)
Quarter: 2022Q3

REPORT INFORMATION
  Report Type: Spontaneous
  Country: DE (occurrence: DE)
  Receive Date: 20211012
  Receipt Date: 20220817
  Transmission Date: 20221027
  Serious: Yes (Other)
  Sender: FDA-Public Use
  Company Number: DE-002147023-NVSC2021DE211561

PATIENT
  Age: 31 Year
  Sex: Female
  Weight: 92 kg

DRUGS (10)
  1. PANTOPRAZOLE [Suspect]
     Active Substance: PANTOPRAZOLE
     Indication: Product used for unknown indication
     Dosage: 40 UNK ()
     Route: 065
     Dates: start: 202106, end: 202107
  2. PREGABALIN [Suspect]
     Active Substance: PREGABALIN
     Indication: Product used for unknown indication
     Dosage: 75 UNK ()
     Route: 065
     Dates: start: 202106
  3. DICLOFENAC [Suspect]
     Active Substance: DICLOFENAC
     Indication: Product used for unknown indication
     Dosage: UNK ()
     Route: 065
     Dates: start: 202106, end: 202107
  4. ACETAMINOPHEN [Suspect]
     Active Substance: ACETAMINOPHEN
     Indication: Product used for unknown indication
     Dosage: 500 UNK ()
     Route: 065
     Dates: start: 202106
  5. OXYCODONE [Suspect]
     Active Substance: OXYCODONE
     Indication: Product used for unknown indication
     Dosage: UNK ()
     Route: 065
     Dates: start: 202106
  6. DIENOGEST\ETHINYL ESTRADIOL [Suspect]
     Active Substance: DIENOGEST\ETHINYL ESTRADIOL
     Indication: Product used for unknown indication
     Dosage: UNK ()
     Route: 065
     Dates: start: 20210607, end: 20210708
  7. DIENOGEST\ETHINYL ESTRADIOL [Suspect]
     Active Substance: DIENOGEST\ETHINYL ESTRADIOL
     Dosage: UNK
     Route: 065
     Dates: start: 20030607, end: 2009
  8. DIENOGEST\ETHINYL ESTRADIOL [Suspect]
     Active Substance: DIENOGEST\ETHINYL ESTRADIOL
     Dosage: UNK
     Route: 065
     Dates: start: 2012, end: 20210708
  9. AMOXICILLIN\CLAVULANIC ACID [Concomitant]
     Active Substance: AMOXICILLIN\CLAVULANIC ACID
     Indication: Product used for unknown indication
     Dosage: UNK ()
     Route: 065
  10. APIXABAN [Concomitant]
     Active Substance: APIXABAN
     Indication: Anticoagulant therapy
     Dosage: UNK ()
     Route: 065

REACTIONS (6)
  - Dyspnoea [Recovering/Resolving]
  - Post procedural pulmonary embolism [Recovering/Resolving]
  - Thrombosis [Recovering/Resolving]
  - Pulmonary infarction [Unknown]
  - Pneumonia [Recovering/Resolving]
  - Chest pain [Recovering/Resolving]

NARRATIVE: CASE EVENT DATE: 20210702
